FAERS Safety Report 22054789 (Version 2)
Quarter: 2023Q2

REPORT INFORMATION
  Report Type: Spontaneous
  Country: US (occurrence: US)
  Receive Date: 20230302
  Receipt Date: 20230407
  Transmission Date: 20230722
  Serious: Yes (Other)
  Sender: FDA-Public Use
  Company Number: US-ELI_LILLY_AND_COMPANY-US202302012447

PATIENT
  Sex: Male

DRUGS (1)
  1. BAQSIMI [Suspect]
     Active Substance: GLUCAGON
     Indication: Hypoglycaemia
     Dosage: 3 MG, SINGLE
     Route: 045

REACTIONS (2)
  - Hypoglycaemia [Recovered/Resolved]
  - Depressed level of consciousness [Recovered/Resolved]
